FAERS Safety Report 5976110-4 (Version None)
Quarter: 2008Q4

REPORT INFORMATION
  Report Type: 
  Country: None (occurrence: None)
  Receive Date: 20081202
  Receipt Date: 20081120
  Transmission Date: 20090506
  Serious: Yes (Hospitalization)
  Sender: FDA-Public Use
  Company Number: FR-WYE-G02623208

PATIENT
  Sex: Male

DRUGS (1)
  1. RAPAMUNE [Suspect]
     Dosage: 3 MG TOTAL DAILY
     Route: 048
     Dates: end: 20081101

REACTIONS (2)
  - IMMUNOSUPPRESSANT DRUG LEVEL INCREASED [None]
  - LUNG DISORDER [None]
